FAERS Safety Report 5123599-9 (Version None)
Quarter: 2006Q4

REPORT INFORMATION
  Report Type: 
  Country: None (occurrence: None)
  Receive Date: 20061010
  Receipt Date: 20060817
  Transmission Date: 20070319
  Serious: Yes (Hospitalization, Other)
  Sender: FDA-Public Use
  Company Number: PHNU2006DE02827

PATIENT
  Age: 29 Year
  Sex: Male
  Weight: 70 kg

DRUGS (4)
  1. GLIANIMON [Concomitant]
     Indication: SCHIZOPHRENIA
     Dosage: 40 MG/DAY
     Dates: end: 20060727
  2. LEPONEX [Suspect]
     Indication: SCHIZOPHRENIA
     Dosage: UP TO 200 MG/DAY
     Route: 048
     Dates: start: 20060721, end: 20060818
  3. LEPONEX [Suspect]
     Dosage: UP TO 25 MG/DAY
     Route: 048
     Dates: start: 20060825, end: 20060827
  4. LEPONEX [Suspect]
     Dates: start: 20060828, end: 20060901

REACTIONS (10)
  - ABDOMINAL RIGIDITY [None]
  - AGITATION [None]
  - ALLERGY TO CHEMICALS [None]
  - BLOOD ALKALINE PHOSPHATASE INCREASED [None]
  - BLOOD POTASSIUM DECREASED [None]
  - DIARRHOEA [None]
  - EOSINOPHILIA [None]
  - LEUKOCYTOSIS [None]
  - POLYDIPSIA PSYCHOGENIC [None]
  - POLYURIA [None]
